FAERS Safety Report 24803517 (Version 2)
Quarter: 2025Q1

REPORT INFORMATION
  Report Type: Spontaneous
  Country: US (occurrence: US)
  Receive Date: 20250103
  Receipt Date: 20250116
  Transmission Date: 20250409
  Serious: No
  Sender: ROCHE
  Company Number: US-ROCHE-10000169145

PATIENT
  Sex: Male

DRUGS (1)
  1. XOLAIR [Suspect]
     Active Substance: OMALIZUMAB
     Indication: Urticaria
     Dosage: FORM STRENGTH: 300MG/2ML
     Route: 058
     Dates: start: 202411

REACTIONS (2)
  - Influenza [Unknown]
  - Hypersomnia [Unknown]
